FAERS Safety Report 9525092 (Version 1)
Quarter: 2013Q1

REPORT INFORMATION
  Report Type: Spontaneous
  Country: US (occurrence: None)
  Receive Date: 20130305
  Receipt Date: 20130305
  Transmission Date: 20140127
  Serious: Yes (Other)
  Sender: FDA-Public Use
  Company Number: 163-21880-12030140

PATIENT
  Age: 73 Year
  Sex: Male
  Weight: 70.31 kg

DRUGS (13)
  1. REVLIMID [Suspect]
     Indication: PLASMA CELL MYELOMA
     Dosage: 10 MG, 1 IN 1 D, PO
     Route: 048
     Dates: start: 20110302, end: 2011
  2. PROTONIX (PANTOPRAZOLE SODIUM) UNKNOWN [Concomitant]
  3. DIOVAN (VALSARTAN) (UNKNOWN) [Concomitant]
  4. VITAMIN B1 (THIAMINE HYDROCHLORIDE) (UNKNOWN) [Concomitant]
  5. OMEGA 3 (FISH OIL) UNKNOWN [Concomitant]
  6. AMOXICILLIN (AMOXICILLIN) (AMOXICILLIN) [Concomitant]
  7. CALCIUM (CALCIUM) (UNKNOWN) [Concomitant]
  8. FOLIC ACID (FOLIC ACID) (UNKNOWN) [Concomitant]
  9. VALTREX (VALACICLOVIR HYDROCHLORIDE) (UNKNOWN) [Concomitant]
  10. VITAMIN C [Concomitant]
  11. POTASSIUM (POTASSIUM) (UNKNOWN) [Concomitant]
  12. LIDODERM (LIDOCAINE) (UNKNOWN) [Concomitant]
  13. VITAMIN D (ERGOCALCIFEROL) (UNKNOWN) [Concomitant]

REACTIONS (4)
  - Pancytopenia [None]
  - Dyspnoea [None]
  - White blood cell count decreased [None]
  - Red blood cell count decreased [None]
